FAERS Safety Report 7369707-0 (Version None)
Quarter: 2011Q1

REPORT INFORMATION
  Report Type: 
  Country: None (occurrence: None)
  Receive Date: 20110323
  Receipt Date: 20110309
  Transmission Date: 20110831
  Serious: Yes (Other)
  Sender: FDA-Public Use
  Company Number: PHHY2011US20126

PATIENT
  Age: 15 Year
  Sex: Male

DRUGS (1)
  1. CEFEPIME [Suspect]
     Indication: HYPOTENSION

REACTIONS (15)
  - EYELID OEDEMA [None]
  - ANAEMIA [None]
  - ANTINUCLEAR ANTIBODY POSITIVE [None]
  - HISTONE ANTIBODY POSITIVE [None]
  - MYALGIA [None]
  - ARTHRALGIA [None]
  - LETHARGY [None]
  - ERYTHEMA OF EYELID [None]
  - RED BLOOD CELL SEDIMENTATION RATE INCREASED [None]
  - SYSTEMIC LUPUS ERYTHEMATOSUS [None]
  - FATIGUE [None]
  - MALAISE [None]
  - LIP OEDEMA [None]
  - ERYTHEMA [None]
  - SWELLING FACE [None]
